FAERS Safety Report 12929231 (Version 1)
Quarter: 2016Q4

REPORT INFORMATION
  Report Type: Spontaneous
  Country: US (occurrence: US)
  Receive Date: 20161110
  Receipt Date: 20161110
  Transmission Date: 20170207
  Serious: No
  Sender: FDA-Public Use
  Company Number: US-PFIZER INC-2016521599

PATIENT
  Age: 53 Year
  Sex: Female

DRUGS (2)
  1. INFLUENZA [Suspect]
     Active Substance: INFLUENZA VIRUS VACCINE
  2. MEDROL [Suspect]
     Active Substance: METHYLPREDNISOLONE

REACTIONS (1)
  - Drug hypersensitivity [Unknown]
